FAERS Safety Report 8471853-5 (Version None)
Quarter: 2012Q2

REPORT INFORMATION
  Report Type: 
  Country: None (occurrence: None)
  Receive Date: 20120627
  Receipt Date: 20120625
  Transmission Date: 20120825
  Serious: Yes (Hospitalization)
  Sender: FDA-Public Use
  Company Number: CH-BAYER-2012-062779

PATIENT
  Age: 58 Year
  Sex: Male

DRUGS (2)
  1. EVEROLIMUS [Suspect]
     Indication: HEPATIC NEOPLASM MALIGNANT NON-RESECTABLE
     Dosage: 2.5 MG, DAILY DOSE
     Route: 048
     Dates: start: 20101006, end: 20120607
  2. SORAFENIB (RAF KINASE INHIBITOR) [Suspect]
     Indication: HEPATIC NEOPLASM MALIGNANT NON-RESECTABLE
     Dosage: 400 MG DAILY
     Route: 048
     Dates: start: 20101006, end: 20120607

REACTIONS (4)
  - CONFUSIONAL STATE [None]
  - HYPERAMMONAEMIA [None]
  - SKIN ULCER [None]
  - OEDEMA PERIPHERAL [None]
